FAERS Safety Report 4962357-2 (Version None)
Quarter: 2006Q2

REPORT INFORMATION
  Report Type: 
  Country: None (occurrence: None)
  Receive Date: 20060403
  Receipt Date: 20060403
  Transmission Date: 20061013
  Serious: Yes (Hospitalization)
  Sender: FDA-Public Use
  Company Number: None

PATIENT
  Age: 66 Year
  Sex: Male
  Weight: 81.82 kg

DRUGS (1)
  1. PLATINOL-AQ [Suspect]
     Indication: SQUAMOUS CELL CARCINOMA
     Dosage: 168 MG ONCE  IV
     Route: 042
     Dates: start: 20051227, end: 20051227

REACTIONS (3)
  - ELECTROLYTE IMBALANCE [None]
  - HAEMODIALYSIS [None]
  - RENAL FAILURE ACUTE [None]
